FAERS Safety Report 10055754 (Version 3)
Quarter: 2014Q2

REPORT INFORMATION
  Report Type: Spontaneous
  Country: DE (occurrence: DE)
  Receive Date: 20140403
  Receipt Date: 20140418
  Transmission Date: 20141212
  Serious: Yes (Hospitalization)
  Sender: FDA-Public Use
  Company Number: PHHY2014DE016946

PATIENT
  Age: 74 Year
  Sex: Female
  Weight: 56.6 kg

DRUGS (11)
  1. GLIVEC [Suspect]
     Indication: CHRONIC LYMPHOCYTIC LEUKAEMIA
     Dosage: 400 MG, DAILY
     Dates: start: 20090310, end: 20121129
  2. GLIVEC [Suspect]
     Dosage: 300 MG, DAILY
     Dates: start: 20121130, end: 20140219
  3. FUROSEMIDE [Concomitant]
     Dosage: 80 MG, DAILY
     Dates: start: 2010
  4. HCT [Concomitant]
     Dosage: 25 MG, DAILY
     Dates: start: 2010
  5. LOPERAMIDE [Concomitant]
     Dosage: 2 MG, DAILY
     Dates: start: 2010
  6. MCP [Concomitant]
     Dosage: UNK UKN, AS NEEDED
     Dates: start: 2011
  7. MAGNESIUM [Concomitant]
     Dosage: 400 MG, DAILY
     Dates: start: 2008
  8. VITAMIN B12 [Concomitant]
     Dosage: 10 UG, DAILY
     Dates: start: 2008
  9. MUCOFALK [Concomitant]
     Dosage: UNK UKN, UNK
     Dates: start: 2011
  10. CALCIUM [Concomitant]
     Dosage: 400 MG, DAILY
     Dates: start: 2008
  11. VITAMIN D3 [Concomitant]
     Dosage: 400 MG, DAILY
     Dates: start: 2008

REACTIONS (13)
  - Palpitations [Recovered/Resolved]
  - Heart rate increased [Recovered/Resolved]
  - Chest pain [Recovered/Resolved]
  - Pain in jaw [Recovered/Resolved]
  - Dyspnoea [Recovered/Resolved]
  - Oedema peripheral [Recovered/Resolved]
  - Face oedema [Recovered/Resolved]
  - Dysphonia [Recovered/Resolved]
  - Diarrhoea [Recovered/Resolved]
  - Arthralgia [Recovered/Resolved]
  - Dermatitis bullous [Recovering/Resolving]
  - Fatigue [Recovered/Resolved]
  - Muscle spasms [Recovered/Resolved]
